FAERS Safety Report 6391895-3 (Version None)
Quarter: 2009Q4

REPORT INFORMATION
  Report Type: 
  Country: None (occurrence: None)
  Receive Date: 20091007
  Receipt Date: 20090923
  Transmission Date: 20100525
  Serious: No
  Sender: FDA-Public Use
  Company Number: US-BAYER-200933342NA

PATIENT
  Age: 73 Year
  Sex: Male
  Weight: 73 kg

DRUGS (5)
  1. ULTRAVIST 300 [Suspect]
     Indication: ANGIOGRAM
     Dosage: DOSE GIVEN ^125MG^, WARMER AND POWER INJECTOR, 4.5 ML/SEC INTO RIGHT ANTECUBITAL
     Route: 042
     Dates: start: 20090915, end: 20090915
  2. ALEVE [Concomitant]
  3. TOPROL-XL [Concomitant]
  4. PREDNISONE [Concomitant]
  5. ASPIRIN [Concomitant]
     Dosage: AS USED: 81 MG

REACTIONS (2)
  - ERYTHEMA [None]
  - PRURITUS [None]
